FAERS Safety Report 13903958 (Version 3)
Quarter: 2017Q4

REPORT INFORMATION
  Report Type: Spontaneous
  Country: GB (occurrence: GB)
  Receive Date: 20170824
  Receipt Date: 20171207
  Transmission Date: 20180320
  Serious: Yes (Death, Hospitalization)
  Sender: FDA-Public Use
  Company Number: GB-MYLANLABS-2017M1052413

PATIENT
  Age: 61 Year
  Sex: Male

DRUGS (2)
  1. DEPAKOTE [Concomitant]
     Active Substance: DIVALPROEX SODIUM
     Indication: SCHIZOPHRENIA
     Dosage: 500 MG, BID
     Route: 048
  2. CLOZARIL [Suspect]
     Active Substance: CLOZAPINE
     Indication: SCHIZOPHRENIA
     Dosage: 200 MG, BID
     Route: 048
     Dates: start: 20140604

REACTIONS (2)
  - Cardiac arrest [Fatal]
  - Hospitalisation [Unknown]

NARRATIVE: CASE EVENT DATE: 20170821
